FAERS Safety Report 12429320 (Version 3)
Quarter: 2016Q2

REPORT INFORMATION
  Report Type: Spontaneous
  Country: JP (occurrence: JP)
  Receive Date: 20160602
  Receipt Date: 20160623
  Transmission Date: 20160815
  Serious: Yes (Hospitalization, Other)
  Sender: FDA-Public Use
  Company Number: JP-TAKEDA-2016MPI004897

PATIENT
  Age: 89 Year
  Sex: Male
  Weight: 59.3 kg

DRUGS (105)
  1. PREDNISOLONE. [Suspect]
     Active Substance: PREDNISOLONE
     Indication: PLASMA CELL MYELOMA
     Dosage: 70 MG, UNK
     Route: 048
     Dates: start: 20151216, end: 20160421
  2. PURSENNID                          /00571902/ [Concomitant]
     Active Substance: SENNOSIDES A AND B
     Indication: CONSTIPATION
     Dosage: 24 MG, UNK
     Route: 048
     Dates: end: 20151218
  3. DAIKENCHUTO [Concomitant]
     Active Substance: HERBALS
     Dosage: 2.5 G, UNK
     Route: 048
     Dates: end: 20151218
  4. CALONAL [Concomitant]
     Active Substance: ACETAMINOPHEN
     Indication: URINARY TRACT INFECTION
     Dosage: 400 MG, UNK
     Route: 048
     Dates: start: 20160219, end: 20160219
  5. CALONAL [Concomitant]
     Active Substance: ACETAMINOPHEN
     Indication: NASOPHARYNGITIS
     Dosage: 400 MG, UNK
     Route: 048
     Dates: start: 20160108, end: 20160122
  6. CALONAL [Concomitant]
     Active Substance: ACETAMINOPHEN
     Dosage: 400 MG, UNK
     Route: 048
     Dates: start: 20160219, end: 20160219
  7. BFLUID [Concomitant]
     Active Substance: AMINO ACIDS\DEXTROSE\ELECTROLYTES NOS\VITAMINS
     Dosage: 500 ML, UNK
     Route: 042
     Dates: start: 20151223, end: 20151223
  8. BFLUID [Concomitant]
     Active Substance: AMINO ACIDS\DEXTROSE\ELECTROLYTES NOS\VITAMINS
     Dosage: 1000 ML, UNK
     Route: 042
     Dates: start: 20160111, end: 20160111
  9. CHLORHEXIDINE GLUCONATE. [Concomitant]
     Active Substance: CHLORHEXIDINE GLUCONATE
     Indication: SKIN EROSION
     Dosage: UNK
     Route: 061
     Dates: start: 20160328, end: 20160509
  10. LEVOFLOXACIN. [Concomitant]
     Active Substance: LEVOFLOXACIN
     Indication: URINARY TRACT INFECTION
     Dosage: 500 MG, UNK
     Route: 048
     Dates: start: 20160219, end: 20160423
  11. MELPHALAN [Suspect]
     Active Substance: MELPHALAN
     Indication: PLASMA CELL MYELOMA
     Dosage: 10 MG, UNK
     Route: 048
     Dates: start: 20151215, end: 20160421
  12. ACETAMINOPHEN. [Concomitant]
     Active Substance: ACETAMINOPHEN
     Indication: SPINAL COMPRESSION FRACTURE
     Dosage: 325 MG, TID
     Route: 048
     Dates: end: 20160115
  13. URIMOX [Concomitant]
     Indication: DRY SKIN
     Dosage: UNK
     Route: 061
     Dates: start: 20151202
  14. CALONAL [Concomitant]
     Active Substance: ACETAMINOPHEN
     Dosage: 400 MG, UNK
     Route: 048
     Dates: start: 20160219, end: 20160219
  15. CALONAL [Concomitant]
     Active Substance: ACETAMINOPHEN
     Dosage: 400 MG, UNK
     Route: 048
     Dates: start: 20160219, end: 20160219
  16. CALONAL [Concomitant]
     Active Substance: ACETAMINOPHEN
     Dosage: 400 MG, UNK
     Route: 048
     Dates: start: 20151204, end: 20151204
  17. ZOFRAN [Concomitant]
     Active Substance: ONDANSETRON HYDROCHLORIDE
     Indication: PROPHYLAXIS OF NAUSEA AND VOMITING
     Dosage: 4 MG, TID
     Route: 048
     Dates: start: 20151215
  18. SULFAMETHOXAZOLE [Concomitant]
     Active Substance: SULFAMETHOXAZOLE
     Indication: PNEUMOCYSTIS JIROVECII PNEUMONIA
     Dosage: 400 MG, UNK
     Route: 048
     Dates: start: 20151221, end: 20160409
  19. TRIMETHOPRIM. [Concomitant]
     Active Substance: TRIMETHOPRIM
     Indication: PNEUMOCYSTIS JIROVECII PNEUMONIA
     Dosage: 80 MG, UNK
     Route: 048
     Dates: start: 20151221, end: 20160409
  20. BFLUID [Concomitant]
     Active Substance: AMINO ACIDS\DEXTROSE\ELECTROLYTES NOS\VITAMINS
     Dosage: 500 ML, UNK
     Route: 042
     Dates: start: 20151223, end: 20151223
  21. LACTEC D                           /00895301/ [Concomitant]
     Dosage: 500 ML, UNK
     Route: 042
     Dates: start: 20160414, end: 20160414
  22. LOPERAMIDE [Concomitant]
     Active Substance: LOPERAMIDE
     Dosage: 1 MG, BID
     Route: 048
     Dates: start: 20151225, end: 20151227
  23. MAGMITT [Concomitant]
     Active Substance: MAGNESIUM OXIDE
     Indication: CONSTIPATION
     Dosage: 330 MG, UNK
     Route: 048
     Dates: start: 20160104
  24. XYLOCAINE [Concomitant]
     Active Substance: LIDOCAINE HYDROCHLORIDE
     Indication: CENTRAL VENOUS CATHETERISATION
     Dosage: UNK
     Route: 061
     Dates: start: 20160115, end: 20160115
  25. SODIUM CHLORIDE. [Concomitant]
     Active Substance: SODIUM CHLORIDE
     Indication: HYPONATRAEMIA
     Dosage: 4 G, BID
     Route: 042
     Dates: start: 20160118, end: 20160124
  26. FEBUXOSTAT. [Concomitant]
     Active Substance: FEBUXOSTAT
     Indication: HYPERURICAEMIA
     Dosage: 40 MG, UNK
     Route: 048
     Dates: end: 20160115
  27. SULFAMETHOXAZOLE AND TRIMETHOPRIM [Concomitant]
     Active Substance: SULFAMETHOXAZOLE\TRIMETHOPRIM
     Indication: ANTIFUNGAL PROPHYLAXIS
     Dosage: 1 DF, UNK
     Route: 048
     Dates: start: 20160418
  28. VELCADE [Suspect]
     Active Substance: BORTEZOMIB
     Indication: PLASMA CELL MYELOMA
     Dosage: 1.6 MG, UNK
     Route: 058
     Dates: start: 20151215, end: 20160516
  29. CALONAL [Concomitant]
     Active Substance: ACETAMINOPHEN
     Dosage: 400 MG, UNK
     Route: 048
     Dates: start: 20160108, end: 20160122
  30. CALONAL [Concomitant]
     Active Substance: ACETAMINOPHEN
     Dosage: 400 MG, UNK
     Route: 048
     Dates: start: 20160220, end: 20160311
  31. CALONAL [Concomitant]
     Active Substance: ACETAMINOPHEN
     Dosage: 400 MG, UNK
     Route: 048
     Dates: start: 20160220, end: 20160311
  32. SODIUM GUALENATE HYDRATE [Concomitant]
     Active Substance: SODIUM GUALENATE MONOHYDRATE
     Indication: INFECTION PROPHYLAXIS
     Dosage: UNK
     Route: 048
     Dates: start: 20151216
  33. PERAPRIN [Concomitant]
     Active Substance: METOCLOPRAMIDE
     Indication: NAUSEA
     Dosage: 5 MG, UNK
     Route: 048
     Dates: start: 20151221, end: 20151221
  34. BFLUID [Concomitant]
     Active Substance: AMINO ACIDS\DEXTROSE\ELECTROLYTES NOS\VITAMINS
     Indication: DEHYDRATION
     Dosage: 1000 ML, UNK
     Route: 042
     Dates: start: 20160113, end: 20160114
  35. BFLUID [Concomitant]
     Active Substance: AMINO ACIDS\DEXTROSE\ELECTROLYTES NOS\VITAMINS
     Dosage: 1000 ML, UNK
     Route: 042
     Dates: start: 20151221, end: 20151221
  36. BFLUID [Concomitant]
     Active Substance: AMINO ACIDS\DEXTROSE\ELECTROLYTES NOS\VITAMINS
     Dosage: 1000 ML, UNK
     Route: 042
     Dates: start: 20160113, end: 20160114
  37. LACTEC D                           /00895301/ [Concomitant]
     Dosage: 500 ML, UNK
     Route: 042
     Dates: start: 20151224, end: 20151224
  38. LOPERAMIDE [Concomitant]
     Active Substance: LOPERAMIDE
     Dosage: 1 MG, BID
     Route: 048
     Dates: start: 20160215, end: 20160217
  39. LOPERAMIDE [Concomitant]
     Active Substance: LOPERAMIDE
     Dosage: 1 MG, BID
     Route: 048
     Dates: start: 20160223, end: 20160224
  40. DENOSIN [Concomitant]
     Indication: CYTOMEGALOVIRUS INFECTION
     Dosage: 250 ML, BID
     Route: 042
     Dates: start: 20160118, end: 20160127
  41. SODIUM CHLORIDE. [Concomitant]
     Active Substance: SODIUM CHLORIDE
     Dosage: 2 G, UNK
     Route: 042
     Dates: start: 20160125, end: 20160127
  42. FUROSEMIDE. [Concomitant]
     Active Substance: FUROSEMIDE
     Dosage: 20 MG, UNK
     Route: 042
     Dates: start: 20160125, end: 20160127
  43. VALIXA [Concomitant]
     Active Substance: VALGANCICLOVIR
     Indication: ANTIVIRAL PROPHYLAXIS
     Dosage: 450 MG, UNK
     Route: 061
     Dates: start: 20160216, end: 20160409
  44. RIBOFLAVIN [Concomitant]
     Active Substance: RIBOFLAVIN
     Indication: LUMBAR SPINAL STENOSIS
     Dosage: 2.5 MG, TID
     Route: 048
     Dates: end: 20160121
  45. LANDSEN [Concomitant]
     Active Substance: CLONAZEPAM
     Dosage: 0.2 G, BID
     Route: 048
     Dates: start: 20151211, end: 20160115
  46. NAUZELIN [Concomitant]
     Active Substance: DOMPERIDONE
     Indication: PROPHYLAXIS OF NAUSEA AND VOMITING
     Dosage: 0.5 G, BID
     Route: 048
     Dates: end: 20151208
  47. CALONAL [Concomitant]
     Active Substance: ACETAMINOPHEN
     Indication: INJECTION SITE PAIN
     Dosage: 400 MG, UNK
     Route: 048
     Dates: start: 20151204, end: 20151204
  48. CALONAL [Concomitant]
     Active Substance: ACETAMINOPHEN
     Dosage: 400 MG, UNK
     Route: 048
     Dates: start: 20151204, end: 20151204
  49. CALONAL [Concomitant]
     Active Substance: ACETAMINOPHEN
     Dosage: 400 MG, UNK
     Route: 048
     Dates: start: 20160108, end: 20160122
  50. TELEMINSOFT [Concomitant]
     Active Substance: BISACODYL
     Indication: CONSTIPATION
     Dosage: 10 MG, UNK
     Route: 054
     Dates: start: 20151208, end: 20151208
  51. TELEMINSOFT [Concomitant]
     Active Substance: BISACODYL
     Dosage: 10 MG, UNK
     Route: 054
     Dates: start: 20160102, end: 20160107
  52. BFLUID [Concomitant]
     Active Substance: AMINO ACIDS\DEXTROSE\ELECTROLYTES NOS\VITAMINS
     Dosage: 1000 ML, UNK
     Route: 042
     Dates: start: 20160111, end: 20160111
  53. LACTEC D                           /00895301/ [Concomitant]
     Indication: DIARRHOEA
     Dosage: 500 ML, UNK
     Route: 042
     Dates: start: 20151224, end: 20151224
  54. LACTEC D                           /00895301/ [Concomitant]
     Dosage: 500 ML, UNK
     Route: 042
     Dates: start: 20160414, end: 20160414
  55. K-SUPPLY [Concomitant]
     Active Substance: POTASSIUM CHLORIDE
     Indication: HYPOKALAEMIA
     Dosage: 600 MG, BID
     Route: 048
     Dates: start: 20160105, end: 20160112
  56. CHLORHEXIDINE GLUCONATE. [Concomitant]
     Active Substance: CHLORHEXIDINE GLUCONATE
     Indication: SKIN ABRASION
     Dosage: UNK
     Route: 061
     Dates: start: 20160106, end: 20160109
  57. CHLORHEXIDINE GLUCONATE. [Concomitant]
     Active Substance: CHLORHEXIDINE GLUCONATE
     Dosage: UNK
     Route: 061
     Dates: start: 20160328
  58. SALICYLAMIDE [Concomitant]
     Active Substance: SALICYLAMIDE
     Indication: NASOPHARYNGITIS
     Dosage: 270 MG, TID
     Route: 048
     Dates: start: 20160109, end: 20160111
  59. ANHYDROUS CAFFEINE [Concomitant]
     Active Substance: CAFFEINE
     Indication: NASOPHARYNGITIS
     Dosage: 60 MG, TID
     Route: 048
     Dates: start: 20160109, end: 20160111
  60. PROMETHAZINE METHYLENEDISALICYLATE [Concomitant]
     Indication: NASOPHARYNGITIS
     Dosage: 13.5 MG, TID
     Route: 048
     Dates: start: 20160109, end: 20160111
  61. FUROSEMIDE. [Concomitant]
     Active Substance: FUROSEMIDE
     Indication: PLEURAL EFFUSION
     Dosage: 20 MG, UNK
     Route: 042
     Dates: start: 20160121, end: 20160123
  62. CYANOCOBALAMIN. [Concomitant]
     Active Substance: CYANOCOBALAMIN
     Indication: LUMBAR SPINAL STENOSIS
     Dosage: 0.25 MG, TID
     Route: 048
     Dates: end: 20160121
  63. VITAMINS NOS [Concomitant]
     Active Substance: VITAMINS
     Indication: LUMBAR SPINAL STENOSIS
     Dosage: 5 ?G, TID
     Route: 048
     Dates: end: 20151207
  64. LANDSEN [Concomitant]
     Active Substance: CLONAZEPAM
     Indication: ESSENTIAL TREMOR
     Dosage: 0.2 G, BID
     Route: 048
     Dates: end: 20151210
  65. TRAMADOL HYDROCHLORIDE. [Concomitant]
     Active Substance: TRAMADOL HYDROCHLORIDE
     Indication: SPINAL COMPRESSION FRACTURE
     Dosage: 37.5 MG, TID
     Route: 048
     Dates: end: 20160115
  66. ACETAMINOPHEN. [Concomitant]
     Active Substance: ACETAMINOPHEN
     Indication: NASOPHARYNGITIS
     Dosage: 150 MG, TID
     Route: 048
     Dates: start: 20160109, end: 20160111
  67. CALONAL [Concomitant]
     Active Substance: ACETAMINOPHEN
     Indication: SPINAL COMPRESSION FRACTURE
     Dosage: 400 MG, UNK
     Route: 048
     Dates: start: 20160220, end: 20160311
  68. CALONAL [Concomitant]
     Active Substance: ACETAMINOPHEN
     Dosage: 400 MG, UNK
     Route: 048
     Dates: start: 20151204, end: 20151204
  69. LACTEC D                           /00895301/ [Concomitant]
     Indication: DECREASED APPETITE
     Dosage: 500 ML, UNK
     Route: 042
     Dates: start: 20160414, end: 20160414
  70. LOPERAMIDE [Concomitant]
     Active Substance: LOPERAMIDE
     Indication: DIARRHOEA
     Dosage: 1 MG, BID
     Route: 048
     Dates: start: 20160308, end: 20160310
  71. PYRIDOXINE HYDROCHLORIDE. [Concomitant]
     Active Substance: PYRIDOXINE HYDROCHLORIDE
     Indication: LUMBAR SPINAL STENOSIS
     Dosage: 40 MG, TID
     Route: 048
     Dates: end: 20160121
  72. MOHRUS [Concomitant]
     Active Substance: KETOPROFEN
     Indication: SPINAL COMPRESSION FRACTURE
     Dosage: 40 MG, UNK
     Route: 048
     Dates: end: 20151228
  73. BONOTEO [Concomitant]
     Active Substance: MINODRONIC ACID
     Indication: OSTEOPOROSIS
     Dosage: 50 MG, UNK
     Route: 048
     Dates: start: 20151127
  74. CALONAL [Concomitant]
     Active Substance: ACETAMINOPHEN
     Dosage: 400 MG, UNK
     Route: 048
     Dates: start: 20151204, end: 20151204
  75. CEFTRIAXONE. [Concomitant]
     Active Substance: CEFTRIAXONE
     Indication: BRONCHITIS
     Dosage: 2 G, UNK
     Route: 042
     Dates: start: 20151204, end: 20151210
  76. BIO-THREE [Concomitant]
     Active Substance: HERBALS
     Dosage: UNK UNK, TID
     Route: 048
     Dates: start: 20160205, end: 20160211
  77. BFLUID [Concomitant]
     Active Substance: AMINO ACIDS\DEXTROSE\ELECTROLYTES NOS\VITAMINS
     Dosage: 1000 ML, UNK
     Route: 042
     Dates: start: 20160111, end: 20160111
  78. BFLUID [Concomitant]
     Active Substance: AMINO ACIDS\DEXTROSE\ELECTROLYTES NOS\VITAMINS
     Dosage: 1000 ML, UNK
     Route: 042
     Dates: start: 20160113, end: 20160114
  79. BFLUID [Concomitant]
     Active Substance: AMINO ACIDS\DEXTROSE\ELECTROLYTES NOS\VITAMINS
     Dosage: 1000 ML, UNK
     Route: 042
     Dates: start: 20151221, end: 20151221
  80. LOPERAMIDE [Concomitant]
     Active Substance: LOPERAMIDE
     Dosage: 1 MG, BID
     Route: 048
     Dates: start: 20160105, end: 20160109
  81. SENNOSIDE                          /00571901/ [Concomitant]
     Active Substance: SENNOSIDES A AND B
     Indication: CONSTIPATION
     Dosage: 12 MG, UNK
     Route: 048
     Dates: start: 20151230, end: 20160102
  82. NORMAL SALINE [Concomitant]
     Active Substance: SODIUM CHLORIDE
     Indication: LOSS OF CONSCIOUSNESS
     Dosage: 500 ML, BID
     Route: 042
     Dates: start: 20160101, end: 20160103
  83. KETOPROFEN. [Concomitant]
     Active Substance: KETOPROFEN
     Indication: LUMBAR SPINAL STENOSIS
     Dosage: 40 MG, UNK
     Route: 061
     Dates: start: 20160206
  84. BIOFERMIN                          /07958301/ [Concomitant]
     Indication: ENTEROCOLITIS
     Dosage: UNK, TID
     Route: 048
     Dates: end: 20151208
  85. CALONAL [Concomitant]
     Active Substance: ACETAMINOPHEN
     Dosage: 400 MG, UNK
     Route: 048
     Dates: start: 20160219, end: 20160219
  86. CALONAL [Concomitant]
     Active Substance: ACETAMINOPHEN
     Dosage: 400 MG, UNK
     Route: 048
     Dates: start: 20160220, end: 20160311
  87. CALONAL [Concomitant]
     Active Substance: ACETAMINOPHEN
     Dosage: 400 MG, UNK
     Route: 048
     Dates: start: 20160220, end: 20160311
  88. CALONAL [Concomitant]
     Active Substance: ACETAMINOPHEN
     Dosage: 400 MG, UNK
     Route: 048
     Dates: start: 20160108, end: 20160122
  89. LACTEC D                           /00895301/ [Concomitant]
     Dosage: 500 ML, UNK
     Route: 042
     Dates: start: 20151224, end: 20151224
  90. LACTEC D                           /00895301/ [Concomitant]
     Dosage: 500 ML, UNK
     Route: 042
     Dates: start: 20160112, end: 20160112
  91. LOXONIN [Concomitant]
     Active Substance: LOXOPROFEN SODIUM
     Indication: ABDOMINAL TENDERNESS
     Dosage: 60 MG, UNK
     Route: 048
     Dates: start: 20160111, end: 20160111
  92. DARATUMUMAB [Suspect]
     Active Substance: DARATUMUMAB
     Indication: PLASMA CELL MYELOMA
     Dosage: 880 MG, Q3WEEKS
     Route: 042
     Dates: start: 20151215, end: 20160509
  93. OCTOTIAMINE [Concomitant]
     Active Substance: OCTOTIAMINE
     Indication: LUMBAR SPINAL STENOSIS
     Dosage: 25 MG, TID
     Route: 048
     Dates: end: 20160121
  94. DAIKENCHUTO [Concomitant]
     Active Substance: HERBALS
     Indication: CONSTIPATION
     Dosage: 2.5 G, UNK
     Route: 048
     Dates: start: 20160102, end: 20160121
  95. CALONAL [Concomitant]
     Active Substance: ACETAMINOPHEN
     Indication: BRONCHITIS
     Dosage: 400 MG, UNK
     Route: 048
     Dates: start: 20160108, end: 20160122
  96. LIMAPROST ALFADEX [Concomitant]
     Active Substance: LIMAPROST
     Indication: LUMBAR SPINAL STENOSIS
     Dosage: 5 ?G, TID
     Route: 048
     Dates: start: 20151208, end: 20160121
  97. BIO-THREE [Concomitant]
     Active Substance: HERBALS
     Indication: DIARRHOEA
     Dosage: UNK UNK, TID
     Route: 048
     Dates: start: 20151220, end: 20151230
  98. BIO-THREE [Concomitant]
     Active Substance: HERBALS
     Dosage: UNK UNK, TID
     Route: 048
     Dates: start: 20160219, end: 20160223
  99. ZOVIRAX [Concomitant]
     Active Substance: ACYCLOVIR
     Indication: PROPHYLAXIS
     Dosage: 200 MG, UNK
     Route: 048
     Dates: start: 20151221, end: 20160215
  100. SOLYUGEN [Concomitant]
     Indication: DIARRHOEA
     Dosage: 500 ML, UNK
     Route: 042
     Dates: start: 20151220, end: 20151220
  101. BFLUID [Concomitant]
     Active Substance: AMINO ACIDS\DEXTROSE\ELECTROLYTES NOS\VITAMINS
     Indication: DECREASED APPETITE
     Dosage: 500 ML, UNK
     Route: 042
     Dates: start: 20151223, end: 20151223
  102. BFLUID [Concomitant]
     Active Substance: AMINO ACIDS\DEXTROSE\ELECTROLYTES NOS\VITAMINS
     Indication: DIARRHOEA
     Dosage: 1000 ML, UNK
     Route: 042
     Dates: start: 20151221, end: 20151221
  103. LACTEC D                           /00895301/ [Concomitant]
     Indication: ORTHOSTATIC INTOLERANCE
     Dosage: 500 ML, UNK
     Route: 042
     Dates: start: 20160112, end: 20160112
  104. LACTEC D                           /00895301/ [Concomitant]
     Dosage: 500 ML, UNK
     Route: 042
     Dates: start: 20160112, end: 20160112
  105. BROTIZOLAM [Concomitant]
     Active Substance: BROTIZOLAM
     Indication: INSOMNIA
     Dosage: 0.25 MG, UNK
     Route: 048
     Dates: start: 20160124, end: 20160224

REACTIONS (20)
  - Decreased appetite [Unknown]
  - Orthostatic intolerance [Unknown]
  - Perichondritis [Not Recovered/Not Resolved]
  - Loss of consciousness [Unknown]
  - Hypokalaemia [Unknown]
  - Influenza [Unknown]
  - Abdominal tenderness [Unknown]
  - Herpes zoster disseminated [Recovered/Resolved]
  - Insomnia [Unknown]
  - Skin erosion [Unknown]
  - Cytomegalovirus infection [Unknown]
  - Hyponatraemia [Unknown]
  - Injection site pain [Unknown]
  - Nasopharyngitis [Unknown]
  - Pleural effusion [Unknown]
  - Diarrhoea [Unknown]
  - Urinary tract infection [Unknown]
  - Skin abrasion [Unknown]
  - Nausea [Unknown]
  - Pyrexia [Unknown]

NARRATIVE: CASE EVENT DATE: 20151219
